FAERS Safety Report 13452846 (Version 2)
Quarter: 2017Q2

REPORT INFORMATION
  Report Type: Spontaneous
  Country: US (occurrence: US)
  Receive Date: 20170418
  Receipt Date: 20170502
  Transmission Date: 20170830
  Serious: Yes (Other)
  Sender: FDA-Public Use
  Company Number: US-009507513-1704USA006986

PATIENT
  Age: 61 Year
  Sex: Female

DRUGS (2)
  1. DECADRON [Suspect]
     Active Substance: DEXAMETHASONE
     Indication: BREAST CANCER
     Dosage: UNK
  2. NEULASTA [Suspect]
     Active Substance: PEGFILGRASTIM
     Indication: PRODUCT USED FOR UNKNOWN INDICATION
     Dosage: UNK

REACTIONS (13)
  - Application site bruise [Unknown]
  - Sinus disorder [Not Recovered/Not Resolved]
  - Cough [Unknown]
  - Blood glucose increased [Not Recovered/Not Resolved]
  - Dry eye [Not Recovered/Not Resolved]
  - Paranasal sinus hypersecretion [Unknown]
  - Application site swelling [Unknown]
  - Application site pain [Recovered/Resolved]
  - Pain in extremity [Recovered/Resolved]
  - Pulmonary thrombosis [Unknown]
  - Application site discolouration [Unknown]
  - Application site haemorrhage [Unknown]
  - Product use in unapproved indication [Unknown]

NARRATIVE: CASE EVENT DATE: 2017
